FAERS Safety Report 8190134-0 (Version None)
Quarter: 2012Q1

REPORT INFORMATION
  Report Type: 
  Country: None (occurrence: None)
  Receive Date: 20120307
  Receipt Date: 20120228
  Transmission Date: 20120608
  Serious: Yes (Hospitalization)
  Sender: FDA-Public Use
  Company Number: DE-JNJFOC-20120301760

PATIENT
  Age: 15 Year
  Sex: Female
  Weight: 62.1 kg

DRUGS (6)
  1. IBUPROFEN [Suspect]
     Indication: PRODUCT USED FOR UNKNOWN INDICATION
     Dosage: 600 MG AS NEEDED UP TO 3 TABLETS
     Route: 065
  2. CANAKINUMAB [Concomitant]
     Dosage: 4 MG/KG ONCE EVERY 4 WEEKS
     Route: 065
     Dates: start: 20100801
  3. HEXAL [Concomitant]
     Route: 065
  4. FOLSAN [Concomitant]
     Route: 065
  5. IBUPROFEN [Suspect]
     Route: 065
     Dates: start: 20120130, end: 20120130
  6. PREDNISOLONE [Concomitant]
     Route: 065

REACTIONS (2)
  - INTENTIONAL OVERDOSE [None]
  - SUICIDE ATTEMPT [None]
